FAERS Safety Report 7885111-0 (Version None)
Quarter: 2011Q4

REPORT INFORMATION
  Report Type: 
  Country: None (occurrence: None)
  Receive Date: 20111102
  Receipt Date: 20100803
  Transmission Date: 20120403
  Serious: No
  Sender: FDA-Public Use
  Company Number: US-BAYER-201029666NA

PATIENT
  Sex: Female

DRUGS (2)
  1. LEVAQUIN [Concomitant]
  2. AVELOX [Suspect]

REACTIONS (1)
  - MYALGIA [None]
